FAERS Safety Report 13013984 (Version 4)
Quarter: 2017Q2

REPORT INFORMATION
  Report Type: Report from Study
  Country: US (occurrence: US)
  Receive Date: 20161209
  Receipt Date: 20170511
  Transmission Date: 20170830
  Serious: Yes (Death, Life-Threatening)
  Sender: FDA-Public Use
  Company Number: US-B.I. PHARMACEUTICALS,INC./RIDGEFIELD-2016-BI-080738

PATIENT
  Age: 56 Year
  Sex: Male
  Weight: 89 kg

DRUGS (1)
  1. BIBF 1120 [Suspect]
     Active Substance: NINTEDANIB
     Indication: PLEURAL MESOTHELIOMA MALIGNANT
     Route: 048
     Dates: start: 20160907

REACTIONS (2)
  - Death [Fatal]
  - Embolism [Not Recovered/Not Resolved]

NARRATIVE: CASE EVENT DATE: 20161121
